FAERS Safety Report 11533932 (Version 1)
Quarter: 2015Q3

REPORT INFORMATION
  Report Type: Spontaneous
  Country: US (occurrence: US)
  Receive Date: 20150922
  Receipt Date: 20150922
  Transmission Date: 20151125
  Serious: No
  Sender: FDA-Public Use
  Company Number: US-TEVA-527755USA

PATIENT
  Age: 93 Year
  Sex: Female

DRUGS (1)
  1. CARVEDILOL. [Suspect]
     Active Substance: CARVEDILOL
     Dates: start: 2014

REACTIONS (2)
  - Urine odour abnormal [Not Recovered/Not Resolved]
  - Product substitution issue [Unknown]
